FAERS Safety Report 14521367 (Version 2)
Quarter: 2018Q1

REPORT INFORMATION
  Report Type: Other
  Country: AU (occurrence: AU)
  Receive Date: 20180212
  Receipt Date: 20180227
  Transmission Date: 20180509
  Serious: Yes (Other)
  Sender: FDA-Public Use
  Company Number: AU-ALSI-201800104

PATIENT
  Age: 41 Year
  Sex: Female

DRUGS (2)
  1. 100% OXYGEN [Suspect]
     Active Substance: OXYGEN
     Indication: TRACHEOSTOMY
     Route: 050
  2. ISOFLURANE. [Concomitant]
     Active Substance: ISOFLURANE

REACTIONS (3)
  - Accident [Unknown]
  - Burns third degree [Unknown]
  - Intentional product misuse [Unknown]
